FAERS Safety Report 8002241-3 (Version None)
Quarter: 2011Q4

REPORT INFORMATION
  Report Type: 
  Country: None (occurrence: None)
  Receive Date: 20111222
  Receipt Date: 20110107
  Transmission Date: 20120403
  Serious: No
  Sender: FDA-Public Use
  Company Number: US-GLAXOSMITHKLINE-A0904068A

PATIENT
  Age: 69 Year
  Sex: Male

DRUGS (3)
  1. NICODERM CQ [Suspect]
     Indication: EX-TOBACCO USER
  2. NICORETTE [Suspect]
     Indication: EX-TOBACCO USER
  3. NICORETTE [Suspect]
     Indication: EX-TOBACCO USER

REACTIONS (5)
  - ABDOMINAL DISCOMFORT [None]
  - HEADACHE [None]
  - LOOSE TOOTH [None]
  - DRUG ADMINISTRATION ERROR [None]
  - FLATULENCE [None]
